FAERS Safety Report 5228751-X (Version None)
Quarter: 2007Q1

REPORT INFORMATION
  Report Type: 
  Country: None (occurrence: None)
  Receive Date: 20070131
  Receipt Date: 20070119
  Transmission Date: 20070707
  Serious: Yes (Disabling)
  Sender: FDA-Public Use
  Company Number: 15551

PATIENT
  Age: 14 Year
  Sex: Female

DRUGS (4)
  1. METHOTREXATE [Suspect]
     Dosage: 12 MG PER_CYCLE IT
     Route: 037
  2. CYTARABINE [Suspect]
     Dosage: 30 MG PER_CYCLE IT
     Route: 037
  3. PREDNISOLONE [Concomitant]
  4. IBUPROFEN [Concomitant]

REACTIONS (15)
  - ALANINE AMINOTRANSFERASE INCREASED [None]
  - ARTHRALGIA [None]
  - ASPARTATE AMINOTRANSFERASE INCREASED [None]
  - ASTHENIA [None]
  - ATONIC URINARY BLADDER [None]
  - BLOOD IMMUNOGLOBULIN A DECREASED [None]
  - BLOOD IMMUNOGLOBULIN M DECREASED [None]
  - BONE MARROW FAILURE [None]
  - GAIT DISTURBANCE [None]
  - GUILLAIN-BARRE SYNDROME [None]
  - NEUROGENIC BLADDER [None]
  - OSTEONECROSIS [None]
  - PARAPLEGIA [None]
  - PROTEIN TOTAL DECREASED [None]
  - URINARY RETENTION [None]
